FAERS Safety Report 17120793 (Version 1)
Quarter: 2019Q4

REPORT INFORMATION
  Report Type: Report from Study
  Country: US (occurrence: US)
  Receive Date: 20191206
  Receipt Date: 20191206
  Transmission Date: 20200122
  Serious: Yes (Other)
  Sender: FDA-Public Use
  Company Number: US-ROCHE-2484426

PATIENT
  Sex: Female

DRUGS (10)
  1. FERROUS SULPHATE [FERROUS SULFATE] [Concomitant]
     Active Substance: FERROUS SULFATE
  2. PREDNISOLONE. [Concomitant]
     Active Substance: PREDNISOLONE
  3. DIGOXIN. [Concomitant]
     Active Substance: DIGOXIN
  4. AMLODIPINE [Concomitant]
     Active Substance: AMLODIPINE BESYLATE
  5. AZITHROMYCIN ANHYDROUS. [Concomitant]
     Active Substance: AZITHROMYCIN ANHYDROUS
  6. VORICONAZOLE. [Concomitant]
     Active Substance: VORICONAZOLE
  7. VALGANCICLOVIR. [Concomitant]
     Active Substance: VALGANCICLOVIR
  8. TACROLIMUS. [Concomitant]
     Active Substance: TACROLIMUS
  9. IPRATROPIUM [Concomitant]
     Active Substance: IPRATROPIUM
  10. CELLCEPT [Suspect]
     Active Substance: MYCOPHENOLATE MOFETIL\MYCOPHENOLATE MOFETIL HYDROCHLORIDE
     Indication: LUNG TRANSPLANT
     Route: 048

REACTIONS (4)
  - Pericardial effusion [Unknown]
  - Intentional product use issue [Unknown]
  - Cardiomegaly [Unknown]
  - Off label use [Unknown]
